FAERS Safety Report 10528563 (Version 1)
Quarter: 2014Q4

REPORT INFORMATION
  Report Type: Spontaneous
  Country: US (occurrence: None)
  Receive Date: 20141016
  Receipt Date: 20141016
  Transmission Date: 20150528
  Serious: Yes (Hospitalization)
  Sender: FDA-Public Use
  Company Number: None

PATIENT
  Age: 90 Year
  Sex: Male
  Weight: 66.6 kg

DRUGS (1)
  1. ERTAPENEM [Suspect]
     Active Substance: ERTAPENEM
     Indication: EMPYEMA
     Route: 042
     Dates: start: 20140928, end: 20141007

REACTIONS (4)
  - Circadian rhythm sleep disorder [None]
  - Hallucination, visual [None]
  - Confusional state [None]
  - Hallucination, auditory [None]

NARRATIVE: CASE EVENT DATE: 20141007
